FAERS Safety Report 24357318 (Version 2)
Quarter: 2024Q3

REPORT INFORMATION
  Report Type: Report from Study
  Country: US (occurrence: US)
  Receive Date: 20240924
  Receipt Date: 20240925
  Transmission Date: 20241016
  Serious: Yes (Hospitalization, Other)
  Sender: MERCK
  Company Number: US-009507513-2408USA003906

PATIENT
  Age: 58 Year
  Sex: Male

DRUGS (5)
  1. SOTATERCEPT [Suspect]
     Active Substance: SOTATERCEPT
     Indication: Pulmonary arterial hypertension
     Dosage: STRENGTH: 45 MG, 0.5MLS, Q3W
     Route: 058
     Dates: start: 202408
  2. WINREVAIR [Suspect]
     Active Substance: SOTATERCEPT-CSRK
     Indication: Pulmonary arterial hypertension
     Dosage: 1.1 MILLILITER, Q3W
     Route: 058
     Dates: start: 202408
  3. WINREVAIR [Suspect]
     Active Substance: SOTATERCEPT-CSRK
     Indication: Pulmonary arterial hypertension
     Dosage: 1.1 MILLILITER, Q3W
     Route: 058
  4. TADALAFIL [Concomitant]
     Active Substance: TADALAFIL
  5. OPSUMIT [Concomitant]
     Active Substance: MACITENTAN

REACTIONS (4)
  - Gastrointestinal haemorrhage [Unknown]
  - Hypotension [Recovered/Resolved]
  - Dyspnoea exertional [Unknown]
  - Weight abnormal [Unknown]

NARRATIVE: CASE EVENT DATE: 20240801
